FAERS Safety Report 5290038-7 (Version None)
Quarter: 2007Q1

REPORT INFORMATION
  Report Type: 
  Country: None (occurrence: None)
  Receive Date: 20070330
  Receipt Date: 20070320
  Transmission Date: 20070707
  Serious: Yes (Other)
  Sender: FDA-Public Use
  Company Number: GXKR2007VE02794

PATIENT
  Age: 42 Hour
  Sex: Female

DRUGS (1)
  1. BINOCLAR (NGX)(CLARITHROMYCIN) TABLET, 500MG [Suspect]
     Dosage: 500 MG, BID
     Dates: start: 20070313, end: 20070314

REACTIONS (1)
  - CHEST PAIN [None]
